FAERS Safety Report 4765977-3 (Version None)
Quarter: 2005Q3

REPORT INFORMATION
  Report Type: 
  Country: None (occurrence: None)
  Receive Date: 20050908
  Receipt Date: 20050825
  Transmission Date: 20060218
  Serious: Yes (Hospitalization)
  Sender: FDA-Public Use
  Company Number: US015756

PATIENT
  Age: 79 Year
  Sex: Female
  Weight: 56 kg

DRUGS (14)
  1. TRISENOX [Suspect]
     Indication: MYELODYSPLASTIC SYNDROME
     Dosage: 12.5 MG Q72HR INTRAVENOUS DRIP
     Route: 041
     Dates: start: 20050620, end: 20050806
  2. SODIUM POLYSTYRENE SULFONATE [Concomitant]
  3. AMBIEN [Concomitant]
  4. LOPRESSOR [Concomitant]
  5. SULFAMETHOXAZOLE + TRIMETHOPRIM [Concomitant]
  6. THALOMID [Concomitant]
  7. ASCORBIC ACID [Concomitant]
  8. DECADRON [Concomitant]
  9. FOLIC ACID [Concomitant]
  10. HYDREA [Concomitant]
  11. PRINIVIL [Concomitant]
  12. CASPOFUNGIN [Concomitant]
  13. POTASSIUM CHLORIDE [Concomitant]
  14. MAGNESIUM SULFATE [Concomitant]

REACTIONS (12)
  - ABDOMINAL DISTENSION [None]
  - ASTHENIA [None]
  - BLOOD POTASSIUM INCREASED [None]
  - FATIGUE [None]
  - HAEMATOCRIT DECREASED [None]
  - HAEMOGLOBIN DECREASED [None]
  - METABOLIC DISORDER [None]
  - NEPHROLITHIASIS [None]
  - PITTING OEDEMA [None]
  - PLATELET COUNT INCREASED [None]
  - SWELLING [None]
  - VISUAL ACUITY REDUCED [None]
